FAERS Safety Report 6152644-7 (Version None)
Quarter: 2009Q2

REPORT INFORMATION
  Report Type: 
  Country: None (occurrence: None)
  Receive Date: 20090413
  Receipt Date: 20090331
  Transmission Date: 20091009
  Serious: Yes (Hospitalization)
  Sender: FDA-Public Use
  Company Number: US-ROCHE-625197

PATIENT
  Sex: Male

DRUGS (9)
  1. MYCOPHENOLATE MOFETIL [Suspect]
     Indication: DRUG USE FOR UNKNOWN INDICATION
     Route: 065
     Dates: start: 20071030
  2. MYCOPHENOLATE MOFETIL [Suspect]
     Route: 065
     Dates: start: 20081217, end: 20081220
  3. PREDNISOLONE [Concomitant]
  4. PREDNISOLONE [Concomitant]
  5. CALCICHEW D3 [Concomitant]
  6. COTRIMAZOL [Concomitant]
  7. AMPHOTERICIN B [Concomitant]
  8. LANSOPRAZOLE [Concomitant]
  9. ALENDRONATE SODIUM [Concomitant]

REACTIONS (1)
  - VASCULITIS [None]
